FAERS Safety Report 15263295 (Version 1)
Quarter: 2018Q3

REPORT INFORMATION
  Report Type: Report from Study
  Country: UY (occurrence: UY)
  Receive Date: 20180810
  Receipt Date: 20180810
  Transmission Date: 20181010
  Serious: Yes (Other)
  Sender: FDA-Public Use
  Company Number: UY-ROCHE-2107054

PATIENT
  Sex: Male

DRUGS (4)
  1. CARBOPLATIN. [Concomitant]
     Active Substance: CARBOPLATIN
  2. ATEZOLIZUMAB. [Suspect]
     Active Substance: ATEZOLIZUMAB
     Indication: TUMOUR INVASION
  3. ATEZOLIZUMAB. [Suspect]
     Active Substance: ATEZOLIZUMAB
     Indication: LUNG CARCINOMA CELL TYPE UNSPECIFIED STAGE IV
     Dosage: SECOND CYCLE ON 10/APR/2018?THIRD CYCLE ON 02//MAY/2018
     Route: 042
     Dates: start: 201803
  4. PACLITAXEL. [Concomitant]
     Active Substance: PACLITAXEL

REACTIONS (11)
  - Lung cancer metastatic [Unknown]
  - Chest pain [Unknown]
  - Radiation associated pain [Unknown]
  - Blood thyroid stimulating hormone decreased [Unknown]
  - Musculoskeletal pain [Not Recovered/Not Resolved]
  - Pruritus [Recovering/Resolving]
  - Pyrexia [Recovered/Resolved]
  - Transaminases increased [Not Recovered/Not Resolved]
  - Scratch [Recovered/Resolved]
  - Blood lactate dehydrogenase increased [Not Recovered/Not Resolved]
  - Pain [Unknown]

NARRATIVE: CASE EVENT DATE: 20180727
